FAERS Safety Report 5832198-2 (Version None)
Quarter: 2008Q3

REPORT INFORMATION
  Report Type: 
  Country: None (occurrence: None)
  Receive Date: 20080730
  Receipt Date: 20080724
  Transmission Date: 20090109
  Serious: Yes (Hospitalization, Other)
  Sender: FDA-Public Use
  Company Number: 2008SP005249

PATIENT
  Age: 37 Year
  Sex: Female
  Weight: 37 kg

DRUGS (10)
  1. TEMODAL [Suspect]
     Indication: GLIOBLASTOMA MULTIFORME
     Dosage: 75 MG/M2; Q2; PO
     Route: 048
     Dates: start: 20080116, end: 20080227
  2. BACTRIM [Suspect]
     Indication: ANTIFUNGAL PROPHYLAXIS
     Dosage: 2 DF; QOD; PO
     Route: 048
     Dates: start: 20080130, end: 20080311
  3. URSO 250 [Concomitant]
  4. EXCEGRAN [Concomitant]
  5. MAGNESIUM OXIDE [Concomitant]
  6. NASEA-OD [Concomitant]
  7. NEU-UP [Concomitant]
  8. MEDICON [Concomitant]
  9. ONON [Concomitant]
  10. FLUNASE [Concomitant]

REACTIONS (7)
  - ABDOMINAL PAIN [None]
  - ANAEMIA [None]
  - BLOOD POTASSIUM DECREASED [None]
  - BLOOD PRESSURE DECREASED [None]
  - COUGH [None]
  - DEHYDRATION [None]
  - GASTROENTERITIS [None]
